FAERS Safety Report 21911079 (Version 1)
Quarter: 2023Q1

REPORT INFORMATION
  Report Type: Spontaneous
  Country: US (occurrence: US)
  Receive Date: 20230125
  Receipt Date: 20230125
  Transmission Date: 20230418
  Serious: No
  Sender: FDA-Public Use
  Company Number: US-TAKEDA-2023TUS009160

PATIENT
  Sex: Female
  Weight: 64 kg

DRUGS (1)
  1. LIALDA [Suspect]
     Active Substance: MESALAMINE
     Indication: Crohn^s disease
     Dosage: 1.2 GRAM, BID
     Route: 065

REACTIONS (3)
  - Insurance issue [Unknown]
  - Product use issue [Unknown]
  - Inability to afford medication [Unknown]
